FAERS Safety Report 10242563 (Version 2)
Quarter: 2014Q2

REPORT INFORMATION
  Report Type: Report from Study
  Country: US (occurrence: US)
  Receive Date: 20140617
  Receipt Date: 20140625
  Transmission Date: 20141212
  Serious: Yes (Hospitalization, Other)
  Sender: FDA-Public Use
  Company Number: US-TAKEDA-2014MPI001669

PATIENT
  Age: 78 Year
  Sex: Female
  Weight: 47.3 kg

DRUGS (4)
  1. VELCADE [Suspect]
     Indication: PLASMA CELL MYELOMA
     Dosage: 1.3 MG/M2, DAYS 1, 4, 8 AND 11 OF 21 DAY CYCLE (MAX = 8 CYCLES)
     Route: 040
     Dates: start: 20081016
  2. LENALIDOMIDE [Suspect]
     Indication: PLASMA CELL MYELOMA
     Dosage: 25 MG, QD, ON DAYS 1-14 OF 21 DAY CYCLE (MAX = 8 CYCLES)
     Route: 048
     Dates: start: 20081016
  3. DEXAMETHASONE [Suspect]
     Indication: PLASMA CELL MYELOMA
     Dosage: 20 MG, ON DAYS 1, 2, 4, 5, 8, 9, 11 AND 12 OF 21 DAY CYCLE (MAX = 8 CYCLES)
     Route: 048
     Dates: start: 20081016
  4. ASPIRIN [Suspect]
     Indication: PLASMA CELL MYELOMA
     Dosage: 325 MG, QD
     Route: 048
     Dates: start: 20081016

REACTIONS (2)
  - Muscular weakness [Not Recovered/Not Resolved]
  - Renal failure acute [Recovered/Resolved]
